FAERS Safety Report 4905499-X (Version None)
Quarter: 2006Q1

REPORT INFORMATION
  Report Type: 
  Country: None (occurrence: None)
  Receive Date: 20060203
  Receipt Date: 20060123
  Transmission Date: 20060701
  Serious: Yes (Hospitalization, Other)
  Sender: FDA-Public Use
  Company Number: 2006011856

PATIENT
  Sex: Male
  Weight: 108.8633 kg

DRUGS (3)
  1. VIAGRA [Suspect]
     Indication: ERECTILE DYSFUNCTION
     Dosage: 100 MG (100 MG, AS NECESSARY)
  2. INSULIN, REGULAR (INSULIN) [Concomitant]
  3. NPH INSULIN  (INSULIN INJECTION) [Concomitant]

REACTIONS (3)
  - DRUG INEFFECTIVE [None]
  - LOCALISED INFECTION [None]
  - STAPHYLOCOCCAL INFECTION [None]
